FAERS Safety Report 23753261 (Version 1)
Quarter: 2024Q2

REPORT INFORMATION
  Report Type: Spontaneous
  Country: NZ (occurrence: NZ)
  Receive Date: 20240417
  Receipt Date: 20240417
  Transmission Date: 20240716
  Serious: Yes (Hospitalization, Disabling, Other)
  Sender: FDA-Public Use
  Company Number: NZ-002147023-PHHY2013NZ063309

PATIENT
  Age: 77 Year
  Sex: Male

DRUGS (9)
  1. CLOZARIL [Suspect]
     Active Substance: CLOZAPINE
     Indication: Schizophrenia
     Dosage: 12.5 MG, NOCTE
     Route: 048
     Dates: start: 20130114
  2. CLOZARIL [Suspect]
     Active Substance: CLOZAPINE
     Dosage: 150 MG, QD
     Route: 048
  3. CLOZARIL [Suspect]
     Active Substance: CLOZAPINE
     Dosage: 250 MG, UNK
     Route: 048
     Dates: start: 20130115
  4. CLOZARIL [Suspect]
     Active Substance: CLOZAPINE
     Dosage: 175 MG, UNK
     Route: 048
  5. CLOZARIL [Suspect]
     Active Substance: CLOZAPINE
     Dosage: 150 MG, UNK
     Route: 048
     Dates: end: 20130210
  6. CLOZARIL [Suspect]
     Active Substance: CLOZAPINE
     Dosage: UNK
     Route: 065
  7. RISPERIDONE [Suspect]
     Active Substance: RISPERIDONE
     Indication: Product used for unknown indication
     Dosage: 0.5 MG, QD
     Route: 048
     Dates: start: 20130110, end: 20130111
  8. PROCYCLIDINE [Concomitant]
     Active Substance: PROCYCLIDINE
     Indication: Akathisia
     Dosage: 10 MG, QD
     Route: 048
  9. SIMVASTATIN [Concomitant]
     Active Substance: SIMVASTATIN
     Indication: Cerebrovascular accident
     Dosage: 40 MG, QD
     Route: 048
     Dates: start: 20130114

REACTIONS (28)
  - Cardiac failure congestive [Recovering/Resolving]
  - Brain natriuretic peptide increased [Recovering/Resolving]
  - Oedema peripheral [Recovering/Resolving]
  - Dyspnoea [Recovering/Resolving]
  - Hypersensitivity pneumonitis [Recovered/Resolved with Sequelae]
  - Hypotension [Recovering/Resolving]
  - Pneumonitis [Recovering/Resolving]
  - Psychotic disorder [Not Recovered/Not Resolved]
  - Panic disorder [Unknown]
  - Atelectasis [Unknown]
  - Pleural effusion [Unknown]
  - Anxiety [Unknown]
  - Atrial flutter [Recovering/Resolving]
  - Atrial fibrillation [Recovering/Resolving]
  - Pneumonia [Recovering/Resolving]
  - Crepitations [Recovering/Resolving]
  - Productive cough [Recovering/Resolving]
  - Pyrexia [Recovering/Resolving]
  - Oxygen saturation decreased [Recovering/Resolving]
  - C-reactive protein increased [Recovering/Resolving]
  - Fatigue [Recovering/Resolving]
  - Myocarditis [Recovering/Resolving]
  - Gait disturbance [Unknown]
  - Neutropenia [Recovering/Resolving]
  - Panic attack [Unknown]
  - Akathisia [Unknown]
  - Malaise [Unknown]
  - Tachycardia [Recovered/Resolved]

NARRATIVE: CASE EVENT DATE: 20130115
